FAERS Safety Report 6685772-8 (Version None)
Quarter: 2010Q2

REPORT INFORMATION
  Report Type: 
  Country: None (occurrence: None)
  Receive Date: 20100415
  Receipt Date: 20100415
  Transmission Date: 20101027
  Serious: Yes (Hospitalization)
  Sender: FDA-Public Use
  Company Number: None

PATIENT
  Age: 37 Year
  Sex: Male
  Weight: 108.8633 kg

DRUGS (1)
  1. TYLENOL [Suspect]
     Indication: HEADACHE
     Dosage: TWO CAPLETS ONCE PO
     Route: 048
     Dates: start: 20100113, end: 20100113

REACTIONS (8)
  - ASTHENIA [None]
  - DIZZINESS [None]
  - DRUG HYPERSENSITIVITY [None]
  - EYE SWELLING [None]
  - NAUSEA [None]
  - OCULAR HYPERAEMIA [None]
  - RASH [None]
  - SWELLING FACE [None]
